FAERS Safety Report 9246077 (Version 1)
Quarter: 2013Q2

REPORT INFORMATION
  Report Type: Spontaneous
  Country: NL (occurrence: NL)
  Receive Date: 20130422
  Receipt Date: 20130422
  Transmission Date: 20140414
  Serious: Yes (Life-Threatening)
  Sender: FDA-Public Use
  Company Number: NL-BAYER-2013-048991

PATIENT
  Age: 19 Year
  Sex: Male

DRUGS (1)
  1. MOXIFLOXACIN ORAL [Suspect]
     Indication: BRONCHIOLITIS

REACTIONS (3)
  - Drug ineffective [None]
  - Respiratory failure [Recovered/Resolved]
  - Organising pneumonia [Recovered/Resolved]
